FAERS Safety Report 7792744-9 (Version None)
Quarter: 2011Q3

REPORT INFORMATION
  Report Type: 
  Country: None (occurrence: None)
  Receive Date: 20110929
  Receipt Date: 20110906
  Transmission Date: 20111222
  Serious: Yes (Hospitalization)
  Sender: FDA-Public Use
  Company Number: 16037582

PATIENT

DRUGS (3)
  1. FLUOROURACIL [Suspect]
     Indication: GASTROINTESTINAL CARCINOMA
     Dosage: 4224 MILLIGRAM IV
     Route: 042
     Dates: start: 20110831, end: 20110902
  2. BRIVANIB ALANINATE [Suspect]
     Indication: GASTROINTESTINAL CARCINOMA
     Dosage: 800 MILLIGRAM ORAL
     Route: 048
     Dates: start: 20110831
  3. LEUCOVORIN SODIUM [Suspect]
     Dosage: IV
     Route: 042
     Dates: start: 20110831, end: 20110902

REACTIONS (2)
  - DEVICE FAILURE [None]
  - OVERDOSE [None]
